FAERS Safety Report 14860924 (Version 1)
Quarter: 2018Q2

REPORT INFORMATION
  Report Type: Spontaneous
  Country: US (occurrence: US)
  Receive Date: 20180508
  Receipt Date: 20180508
  Transmission Date: 20180711
  Serious: No
  Sender: FDA-Public Use
  Company Number: US-BRISTOL-MYERS SQUIBB COMPANY-BMS-2018-040377

PATIENT
  Age: 54 Year
  Sex: Female

DRUGS (7)
  1. DESONIDE. [Suspect]
     Active Substance: DESONIDE
     Indication: VULVOVAGINAL PRURITUS
     Route: 061
  2. ACICLOVIR [Suspect]
     Active Substance: ACYCLOVIR
     Indication: VULVOVAGINAL PRURITUS
     Route: 061
  3. TRIAMCINOLONE ACETONIDE. [Suspect]
     Active Substance: TRIAMCINOLONE ACETONIDE
     Indication: LANGERHANS^ CELL HISTIOCYTOSIS
     Dosage: UNK
     Route: 061
  4. HALCINONIDE [Suspect]
     Active Substance: HALCINONIDE
     Indication: VULVOVAGINAL PRURITUS
     Route: 061
  5. MUPIROCIN. [Suspect]
     Active Substance: MUPIROCIN
     Indication: VULVOVAGINAL PRURITUS
     Route: 061
  6. CLOBETASOL PROPIONATE. [Suspect]
     Active Substance: CLOBETASOL PROPIONATE
     Indication: VULVOVAGINAL PRURITUS
     Route: 061
  7. DESOXIMETASONE. [Suspect]
     Active Substance: DESOXIMETASONE
     Indication: VULVOVAGINAL PRURITUS
     Route: 061

REACTIONS (3)
  - Skin disorder [Unknown]
  - Drug intolerance [Unknown]
  - Treatment failure [Unknown]
